FAERS Safety Report 18620668 (Version 1)
Quarter: 2020Q4

REPORT INFORMATION
  Report Type: Spontaneous
  Country: IT (occurrence: IT)
  Receive Date: 20201215
  Receipt Date: 20201215
  Transmission Date: 20210114
  Serious: Yes (Hospitalization)
  Sender: FDA-Public Use
  Company Number: IT-PFIZER INC-2020493001

PATIENT
  Age: 58 Year
  Sex: Female

DRUGS (4)
  1. QUETIAPINE. [Suspect]
     Active Substance: QUETIAPINE
     Dosage: 600 MG TOTAL
     Route: 048
     Dates: start: 20201204, end: 20201204
  2. HALCION [Suspect]
     Active Substance: TRIAZOLAM
     Dosage: 600 MG TOTAL
     Route: 048
     Dates: start: 20201204, end: 20201204
  3. CITALOPRAM [Suspect]
     Active Substance: CITALOPRAM HYDROBROMIDE
     Dosage: 15 ML TOTAL
     Route: 048
     Dates: start: 20201204, end: 20201204
  4. ZOLPIDEM TARTRATE. [Suspect]
     Active Substance: ZOLPIDEM TARTRATE
     Dosage: 40 MG TOTAL
     Route: 048
     Dates: start: 20201204, end: 20201204

REACTIONS (3)
  - Intentional overdose [Unknown]
  - Sopor [Recovering/Resolving]
  - Suicide attempt [Recovering/Resolving]

NARRATIVE: CASE EVENT DATE: 20201204
